FAERS Safety Report 9651928 (Version 1)
Quarter: 2013Q4

REPORT INFORMATION
  Report Type: Spontaneous
  Country: US (occurrence: None)
  Receive Date: 20131028
  Receipt Date: 20131028
  Transmission Date: 20140711
  Serious: Yes (Life-Threatening)
  Sender: FDA-Public Use
  Company Number: None

PATIENT
  Age: 72 Year
  Sex: Female
  Weight: 46.72 kg

DRUGS (1)
  1. TORISEL [Suspect]
     Indication: RENAL CANCER
     Route: 042
     Dates: start: 20131023

REACTIONS (3)
  - Palpitations [None]
  - Throat tightness [None]
  - Flushing [None]
